FAERS Safety Report 21713958 (Version 2)
Quarter: 2022Q4

REPORT INFORMATION
  Report Type: Spontaneous
  Country: CN (occurrence: CN)
  Receive Date: 20221212
  Receipt Date: 20221212
  Transmission Date: 20230112
  Serious: Yes (Other)
  Sender: FDA-Public Use
  Company Number: CN-PFIZER INC-202201348627

PATIENT
  Age: 15 Year
  Sex: Female

DRUGS (13)
  1. PIPERACILLIN SODIUM\TAZOBACTAM SODIUM [Suspect]
     Active Substance: PIPERACILLIN SODIUM\TAZOBACTAM SODIUM
     Indication: Pneumonia
     Dosage: UNK
  2. CEFOPERAZONE SODIUM\SULBACTAM SODIUM [Suspect]
     Active Substance: CEFOPERAZONE SODIUM\SULBACTAM SODIUM
     Indication: Pneumonia
     Dosage: UNK
  3. LEVOFLOXACIN [Suspect]
     Active Substance: LEVOFLOXACIN
     Indication: Pneumonia
     Dosage: UNK
  4. VORICONAZOLE [Concomitant]
     Active Substance: VORICONAZOLE
     Indication: Aplastic anaemia
     Dosage: UNK
  5. FOSFOMYCIN [Concomitant]
     Active Substance: FOSFOMYCIN
     Indication: Aplastic anaemia
     Dosage: UNK
  6. POLYMYXIN [Concomitant]
     Active Substance: POLYMYXIN
     Indication: Aplastic anaemia
     Dosage: UNK
  7. MEROPENEM [Concomitant]
     Active Substance: MEROPENEM
     Indication: Aplastic anaemia
     Dosage: UNK
  8. MICAFUNGIN [Concomitant]
     Active Substance: MICAFUNGIN
     Indication: Aplastic anaemia
  9. PREDNISONE [Concomitant]
     Active Substance: PREDNISONE
     Dosage: UNK
  10. CYCLOSPORINE [Concomitant]
     Active Substance: CYCLOSPORINE
     Dosage: UNK
  11. DANAZOL [Concomitant]
     Active Substance: DANAZOL
     Dosage: UNK
  12. AVIBACTAM SODIUM/CEFTAZIDIME [Concomitant]
     Indication: Vomiting
     Dosage: UNK
  13. AVIBACTAM SODIUM/CEFTAZIDIME [Concomitant]
     Indication: Shock haemorrhagic

REACTIONS (4)
  - Oral fungal infection [Recovered/Resolved]
  - Neutropenia [Unknown]
  - Drug ineffective [Unknown]
  - Drug resistance [Unknown]
